FAERS Safety Report 21183708 (Version 1)
Quarter: 2022Q3

REPORT INFORMATION
  Report Type: Spontaneous
  Country: FR (occurrence: FR)
  Receive Date: 20220808
  Receipt Date: 20220808
  Transmission Date: 20221026
  Serious: Yes (Other)
  Sender: FDA-Public Use
  Company Number: FR-AFSSAPS-NY20222138

PATIENT
  Age: 20 Year
  Sex: Male
  Weight: 95 kg

DRUGS (1)
  1. NEBIVOLOL [Suspect]
     Active Substance: NEBIVOLOL
     Indication: Essential hypertension
     Route: 048
     Dates: start: 2009

REACTIONS (1)
  - Hyperhidrosis [Not Recovered/Not Resolved]
